FAERS Safety Report 13613785 (Version 1)
Quarter: 2017Q2

REPORT INFORMATION
  Report Type: Spontaneous
  Country: FR (occurrence: FR)
  Receive Date: 20170606
  Receipt Date: 20170606
  Transmission Date: 20170830
  Serious: Yes (Disabling)
  Sender: FDA-Public Use
  Company Number: FR-BAYER-2017-100592

PATIENT
  Age: 36 Year
  Sex: Female

DRUGS (1)
  1. MIRENA [Suspect]
     Active Substance: LEVONORGESTREL
     Indication: CONTRACEPTION
     Dosage: 20 MCG/24HR, CONT
     Route: 015
     Dates: start: 20160820

REACTIONS (10)
  - Alopecia [Unknown]
  - Loss of libido [Unknown]
  - Migraine [Unknown]
  - Weight increased [Unknown]
  - Fatigue [Unknown]
  - Amenorrhoea [Unknown]
  - Tachycardia [Unknown]
  - Breast pain [Unknown]
  - Depression [Unknown]
  - Back pain [Unknown]

NARRATIVE: CASE EVENT DATE: 201610
